FAERS Safety Report 8806092 (Version 1)
Quarter: 2012Q4

REPORT INFORMATION
  Report Type: 
  Country: FR (occurrence: FR)
  Receive Date: 20120925
  Receipt Date: 20120925
  Transmission Date: 20130627
  Serious: Yes (Hospitalization)
  Sender: FDA-Public Use
  Company Number: FR-BRISTOL-MYERS SQUIBB COMPANY-16969727

PATIENT
  Age: 91 Year
  Sex: Female

DRUGS (6)
  1. APROVEL TABS 150 MG [Suspect]
     Dosage: 1DF = 1 tabs
     Route: 048
     Dates: end: 20120606
  2. ESIDREX [Suspect]
     Dosage: TAbs
     Route: 048
     Dates: end: 20120606
  3. LEVOTHYROX [Concomitant]
  4. KARDEGIC [Concomitant]
  5. INEXIUM [Concomitant]
  6. SERESTA [Concomitant]

REACTIONS (2)
  - Hyponatraemia [Recovered/Resolved]
  - Orthostatic hypotension [Recovered/Resolved]
